FAERS Safety Report 9207308 (Version 2)
Quarter: 2014Q1

REPORT INFORMATION
  Report Type: Spontaneous
  Country: US (occurrence: US)
  Receive Date: 20130403
  Receipt Date: 20140115
  Transmission Date: 20141002
  Serious: Yes (Other)
  Sender: FDA-Public Use
  Company Number: US-BAYER-2013-040028

PATIENT
  Age: 20 Year
  Sex: Female

DRUGS (9)
  1. YASMIN [Suspect]
     Dosage: UNK
     Dates: start: 200301, end: 201011
  2. YAZ [Suspect]
     Dosage: UNK
     Dates: start: 200301, end: 201011
  3. ADDERALL [Concomitant]
     Dosage: 20 MG, UNK
  4. RHINOCORT [Concomitant]
  5. ZYRTEC [Concomitant]
     Dosage: 10 MG, UNK
  6. HYDROCODONE W/APAP [Concomitant]
  7. LEVAQUIN [Concomitant]
     Dosage: 500 MG, UNK
  8. PROMETHAZINE [Concomitant]
     Dosage: 25 MG, UNK
  9. IMITREX [Concomitant]
     Dosage: 50 MG, UNK

REACTIONS (8)
  - Gallbladder disorder [None]
  - Cholecystitis acute [None]
  - Biliary dyskinesia [None]
  - Injury [None]
  - Pain [None]
  - Emotional distress [None]
  - Anxiety [None]
  - Psychological trauma [None]
